FAERS Safety Report 10064498 (Version 1)
Quarter: 2014Q2

REPORT INFORMATION
  Report Type: Spontaneous
  Country: DE (occurrence: None)
  Receive Date: 20140404
  Receipt Date: 20140404
  Transmission Date: 20141212
  Serious: Yes (Other)
  Sender: FDA-Public Use
  Company Number: 2014-19281

PATIENT
  Sex: Female

DRUGS (7)
  1. EYLEA (AFLIBERCEPT) INJECTION)AFLIBERCEPT) [Suspect]
     Indication: AGE-RELATED MACULAR DEGENERATION
     Route: 031
  2. CARDILOC [Suspect]
  3. VASODIP (LERCANIDIPINE HYDROCHLORIDE) [Concomitant]
  4. FUSID (FUROSEMIDE) [Concomitant]
  5. ALDOSPIRONE [Suspect]
  6. ATACAND (CANDESARTAN CILEXETIL) [Concomitant]
  7. DISOTHIAZIDE (HYDROCHLOROTHIAZIDE) [Concomitant]

REACTIONS (3)
  - Blood pressure increased [None]
  - Dizziness [None]
  - Vomiting [None]
